FAERS Safety Report 7108363-3 (Version None)
Quarter: 2010Q4

REPORT INFORMATION
  Report Type: 
  Country: None (occurrence: None)
  Receive Date: 20101117
  Receipt Date: 20101115
  Transmission Date: 20110411
  Serious: Yes (Hospitalization)
  Sender: FDA-Public Use
  Company Number: A0760193A

PATIENT
  Age: 71 Year
  Sex: Male

DRUGS (20)
  1. REQUIP XL [Suspect]
     Indication: PARKINSON'S DISEASE
     Dosage: 6MG PER DAY
     Route: 048
     Dates: start: 20070101
  2. REQUIP [Suspect]
     Indication: PARKINSON'S DISEASE
     Dosage: 2MG THREE TIMES PER DAY
     Route: 048
     Dates: start: 20070601, end: 20080201
  3. BENICAR [Concomitant]
  4. METOPROLOL [Concomitant]
  5. GLIPIZIDE [Concomitant]
  6. JANUVIA [Concomitant]
  7. NIASPAN [Concomitant]
  8. LIPITOR [Concomitant]
  9. HYTRIN [Concomitant]
  10. LOMOTIL [Concomitant]
  11. UNSPECIFIED MEDICATION [Concomitant]
  12. AZILECT [Concomitant]
  13. DIOVAN [Concomitant]
  14. BUMETANIDE [Concomitant]
  15. LACTOBACILLUS ACIDOPHILUS [Concomitant]
  16. FOLIC ACID [Concomitant]
  17. LIPITOR [Concomitant]
  18. PLAVIX [Concomitant]
  19. OMEPRAZOLE [Concomitant]
  20. AMLODIPINE [Concomitant]

REACTIONS (4)
  - BALANCE DISORDER [None]
  - FALL [None]
  - MOBILITY DECREASED [None]
  - SOMNOLENCE [None]
